FAERS Safety Report 13829720 (Version 1)
Quarter: 2017Q3

REPORT INFORMATION
  Report Type: Spontaneous
  Country: US (occurrence: US)
  Receive Date: 20170803
  Receipt Date: 20170803
  Transmission Date: 20171127
  Serious: Yes (Death, Hospitalization)
  Sender: FDA-Public Use
  Company Number: US-BAYER-2017-004295

PATIENT
  Age: 58 Year
  Sex: Male

DRUGS (4)
  1. XARELTO [Suspect]
     Active Substance: RIVAROXABAN
     Indication: CEREBROVASCULAR ACCIDENT PROPHYLAXIS
  2. ACETYLSALICYLIC ACID({=100 MG) [Suspect]
     Active Substance: ASPIRIN
     Indication: CORONARY ARTERY DISEASE
     Dosage: 81 MG, QD
     Route: 048
     Dates: end: 20141203
  3. XARELTO [Suspect]
     Active Substance: RIVAROXABAN
     Indication: ATRIAL FIBRILLATION
  4. XARELTO [Suspect]
     Active Substance: RIVAROXABAN
     Indication: ARRHYTHMIA SUPRAVENTRICULAR
     Dosage: 15 MG, QD
     Route: 048
     Dates: start: 20141105, end: 20141203

REACTIONS (3)
  - Gastrointestinal haemorrhage [Recovering/Resolving]
  - Renal injury [Recovering/Resolving]
  - Myocardial infarction [Fatal]

NARRATIVE: CASE EVENT DATE: 201411
